FAERS Safety Report 19054129 (Version 1)
Quarter: 2021Q1

REPORT INFORMATION
  Report Type: Spontaneous
  Country: US (occurrence: US)
  Receive Date: 20210324
  Receipt Date: 20210324
  Transmission Date: 20210420
  Serious: No
  Sender: FDA-Public Use
  Company Number: US-BAYER-2021-110786

PATIENT
  Sex: Female

DRUGS (1)
  1. MIRENA [Suspect]
     Active Substance: LEVONORGESTREL
     Dosage: 20 ?G PER DAY CONTINUOUSLY
     Route: 015

REACTIONS (5)
  - Breast tenderness [None]
  - Vaginal haemorrhage [None]
  - Premenstrual syndrome [None]
  - Coital bleeding [None]
  - Mood altered [None]

NARRATIVE: CASE EVENT DATE: 2019
